FAERS Safety Report 22367413 (Version 1)
Quarter: 2023Q2

REPORT INFORMATION
  Report Type: Spontaneous
  Country: IT (occurrence: IT)
  Receive Date: 20230525
  Receipt Date: 20230525
  Transmission Date: 20230721
  Serious: Yes (Other)
  Sender: FDA-Public Use
  Company Number: IT-UCBSA-2023026578

PATIENT
  Sex: Female
  Weight: 54 kg

DRUGS (4)
  1. CIMZIA [Suspect]
     Active Substance: CERTOLIZUMAB PEGOL
     Indication: Spondylitis
     Dosage: 200 MILLIGRAM, UNK
     Route: 058
     Dates: start: 202110, end: 202210
  2. SULFASALAZINE [Concomitant]
     Active Substance: SULFASALAZINE
     Indication: Spondylitis
     Dosage: 4 TABLETS/DAILY
     Route: 048
     Dates: start: 2020, end: 2022
  3. NEODIDRO [Concomitant]
     Indication: Hypovitaminosis
     Dosage: 0.266 MILLIGRAM, WEEKLY (QW)
     Route: 048
     Dates: start: 2020, end: 2022
  4. EZETIMIBE [Concomitant]
     Active Substance: EZETIMIBE
     Indication: Hypercholesterolaemia
     Dosage: 0.266 MILLIGRAM, WEEKLY (QW)
     Route: 048
     Dates: start: 2020, end: 2022

REACTIONS (2)
  - Plantar fasciitis [Recovering/Resolving]
  - Drug ineffective [Unknown]
